FAERS Safety Report 8640566 (Version 4)
Quarter: 2012Q4

REPORT INFORMATION
  Report Type: 
  Country: US (occurrence: US)
  Receive Date: 20120628
  Receipt Date: 20120830
  Transmission Date: 20130627
  Serious: Yes (Hospitalization)
  Sender: FDA-Public Use
  Company Number: US-ASTRAZENECA-2012SE37274

PATIENT
  Age: 68 Year
  Sex: Female
  Weight: 72.6 kg

DRUGS (23)
  1. PRILOSEC OTC [Suspect]
     Indication: DYSPEPSIA
     Dosage: TOOK 1 TABLET AT 4 PM AND TOOK ONE MORE TABLET AT 8 PM
     Route: 048
     Dates: start: 20120601, end: 20120601
  2. PRILOSEC OTC [Suspect]
     Indication: GASTROOESOPHAGEAL REFLUX DISEASE
     Dosage: TOOK 1 TABLET AT 4 PM AND TOOK ONE MORE TABLET AT 8 PM
     Route: 048
     Dates: start: 20120601, end: 20120601
  3. CARDIAC MEDICATION [Concomitant]
  4. DIABETIC MEDICATION [Concomitant]
  5. TUMS [Concomitant]
     Indication: GASTROOESOPHAGEAL REFLUX DISEASE
  6. LOPRESSOR [Concomitant]
     Indication: HYPERTENSION
     Route: 048
  7. ZESTRIL [Concomitant]
     Indication: HYPERTENSION
     Route: 048
  8. GLUCOPHAGE [Concomitant]
     Route: 048
  9. GLYBURIDE [Concomitant]
     Route: 048
  10. IMDUR [Concomitant]
     Route: 048
  11. LIPITOR [Concomitant]
     Route: 048
  12. NITROSTAT [Concomitant]
     Route: 060
  13. LEVOXYL [Concomitant]
     Route: 048
  14. PEPCID [Concomitant]
     Indication: PROPHYLAXIS AGAINST GASTROINTESTINAL ULCER
     Route: 048
  15. HEPARIN [Concomitant]
     Indication: THROMBOSIS PROPHYLAXIS
  16. METOPROLOL [Concomitant]
     Route: 048
  17. LISINOPRIL [Concomitant]
     Route: 048
  18. METFORMIN [Concomitant]
  19. NITROGLYCERINE [Concomitant]
  20. ZOFRAN [Concomitant]
     Dosage: EVERY 6 HOURS AS NEEDED
  21. NOVOLOG [Concomitant]
  22. MORPHINE [Concomitant]
     Dosage: EVERY 4 HOURS AS NEEDED
     Route: 042
  23. ASPIRIN [Concomitant]
     Route: 048

REACTIONS (13)
  - Dehydration [Unknown]
  - Vomiting [Unknown]
  - Throat irritation [Unknown]
  - Poisoning [Unknown]
  - Dysphagia [Unknown]
  - Odynophagia [Unknown]
  - Diverticulum [Unknown]
  - Chest discomfort [Unknown]
  - Nausea [Unknown]
  - Chest pain [Unknown]
  - Chest discomfort [Unknown]
  - Regurgitation [Unknown]
  - Dysphonia [Unknown]
